FAERS Safety Report 7563158-1 (Version None)
Quarter: 2011Q2

REPORT INFORMATION
  Report Type: 
  Country: None (occurrence: None)
  Receive Date: 20110615
  Receipt Date: 20110531
  Transmission Date: 20111010
  Serious: Yes (Other)
  Sender: FDA-Public Use
  Company Number: AUR-APL-2011-02337

PATIENT
  Age: 76 Year
  Sex: Male

DRUGS (9)
  1. SIMVASTATIN [Concomitant]
  2. ASPIRIN [Concomitant]
  3. MULTI-VITAMIN [Concomitant]
  4. LOSARTAN POTASSIUM [Concomitant]
  5. ZOLMITRIPTAN [Concomitant]
  6. GABAPENTIN [Suspect]
     Indication: MIGRAINE
     Dosage: 300MG-TID
  7. GABAPENTIN [Suspect]
     Indication: MIGRAINE
     Dosage: 600MG-TID
  8. GABAPENTIN [Suspect]
     Indication: MIGRAINE
     Dosage: 900MG-TID
  9. FINASTERIDE [Concomitant]

REACTIONS (4)
  - OEDEMA [None]
  - DIZZINESS [None]
  - ANORGASMIA [None]
  - SOMNOLENCE [None]
